FAERS Safety Report 7470032-8 (Version None)
Quarter: 2011Q2

REPORT INFORMATION
  Report Type: 
  Country: None (occurrence: None)
  Receive Date: 20110510
  Receipt Date: 20110506
  Transmission Date: 20111010
  Serious: Yes (Hospitalization)
  Sender: FDA-Public Use
  Company Number: IT-PFIZER INC-2011098669

PATIENT
  Age: 65 Year
  Sex: Male

DRUGS (5)
  1. FLUOROURACIL [Suspect]
     Dosage: 4488 MG, CYCLIC
     Route: 042
     Dates: start: 20110110
  2. FLUOROURACIL [Suspect]
     Indication: HEPATIC NEOPLASM MALIGNANT
     Dosage: 748 MG, CYCLIC
     Route: 040
     Dates: start: 20110110
  3. CAMPTOSAR [Suspect]
     Indication: HEPATIC NEOPLASM MALIGNANT
     Dosage: 336 MG, CYCLIC
     Route: 042
     Dates: start: 20110110
  4. LEUCOVORIN CALCIUM [Suspect]
     Indication: HEPATIC NEOPLASM MALIGNANT
     Dosage: 374 MG, CYCLIC
     Route: 042
     Dates: start: 20110110
  5. ERBITUX [Suspect]
     Indication: HEPATIC NEOPLASM MALIGNANT
     Dosage: 148 MG, CYCLIC
     Route: 042
     Dates: start: 20110110

REACTIONS (3)
  - STRANGURY [None]
  - MICTURITION URGENCY [None]
  - DYSURIA [None]
